FAERS Safety Report 24172591 (Version 2)
Quarter: 2024Q3

REPORT INFORMATION
  Report Type: Report from Study
  Country: CO (occurrence: CO)
  Receive Date: 20240805
  Receipt Date: 20240815
  Transmission Date: 20241016
  Serious: Yes (Death, Hospitalization, Other)
  Sender: UCB
  Company Number: CO-UCBSA-2024038995

PATIENT
  Age: 73 Year
  Sex: Female

DRUGS (3)
  1. CERTOLIZUMAB PEGOL [Suspect]
     Active Substance: CERTOLIZUMAB PEGOL
     Indication: Rheumatoid arthritis
     Dosage: 400 MILLIGRAM, MONTHLY (QM) SOLUTION FOR INJECTION
     Route: 058
     Dates: start: 20190712, end: 20240514
  2. LEFLUNOMIDE [Concomitant]
     Active Substance: LEFLUNOMIDE
     Indication: Product used for unknown indication
     Dosage: UNK
  3. METHOTREXATE [Concomitant]
     Active Substance: METHOTREXATE
     Indication: Product used for unknown indication
     Dosage: UNK

REACTIONS (3)
  - Myocardial infarction [Fatal]
  - Diverticulum [Not Recovered/Not Resolved]
  - Off label use [Unknown]

NARRATIVE: CASE EVENT DATE: 20190712
